FAERS Safety Report 5249210-4 (Version None)
Quarter: 2007Q1

REPORT INFORMATION
  Report Type: 
  Country: None (occurrence: None)
  Receive Date: 20070228
  Receipt Date: 20070221
  Transmission Date: 20070707
  Serious: Yes (Death, Life-Threatening, Hospitalization)
  Sender: FDA-Public Use
  Company Number: NL-JNJFOC-20051202882

PATIENT
  Sex: Female
  Weight: 53.5 kg

DRUGS (18)
  1. INFLIXIMAB [Suspect]
     Route: 042
  2. INFLIXIMAB [Suspect]
     Route: 042
  3. INFLIXIMAB [Suspect]
     Route: 042
  4. INFLIXIMAB [Suspect]
     Route: 042
  5. INFLIXIMAB [Suspect]
     Indication: CROHN'S DISEASE
     Route: 042
  6. PREDNISON [Concomitant]
     Indication: CROHN'S DISEASE
     Route: 065
  7. ENTOCORT [Concomitant]
     Indication: CROHN'S DISEASE
     Route: 065
  8. ACTONEL [Concomitant]
     Indication: OSTEOPOROSIS PROPHYLAXIS
     Route: 065
  9. PENTASA [Concomitant]
     Indication: CROHN'S DISEASE
     Route: 065
  10. NEXIUM [Concomitant]
     Route: 065
  11. SPIRONOLACTONE [Concomitant]
     Route: 065
  12. FUROSEMIDE [Concomitant]
     Route: 065
  13. AZIATROPINE [Concomitant]
     Route: 065
  14. LANTUS [Concomitant]
     Route: 065
  15. NOVORAPID [Concomitant]
     Route: 065
  16. AZATHIOPRINE [Concomitant]
     Route: 065
  17. AZATHIOPRINE [Concomitant]
     Route: 065
  18. AMARYL [Concomitant]
     Route: 065

REACTIONS (2)
  - PANCREATIC CARCINOMA [None]
  - PANCREATIC CARCINOMA METASTATIC [None]
